FAERS Safety Report 20775618 (Version 2)
Quarter: 2022Q2

REPORT INFORMATION
  Report Type: Spontaneous
  Country: US (occurrence: US)
  Receive Date: 20220502
  Receipt Date: 20220519
  Transmission Date: 20220720
  Serious: No
  Sender: FDA-Public Use
  Company Number: US-PFIZER INC-202200605848

PATIENT
  Age: 72 Year
  Sex: Female

DRUGS (1)
  1. IBRANCE [Suspect]
     Active Substance: PALBOCICLIB
     Dosage: 125 MG
     Dates: start: 202204

REACTIONS (5)
  - Product dose omission issue [Unknown]
  - Rash [Not Recovered/Not Resolved]
  - Rash [Recovered/Resolved]
  - Dyspnoea [Unknown]
  - Tremor [Unknown]
